FAERS Safety Report 22050746 (Version 1)
Quarter: 2023Q1

REPORT INFORMATION
  Report Type: Spontaneous
  Country: US (occurrence: None)
  Receive Date: 20230228
  Receipt Date: 20230228
  Transmission Date: 20230417
  Serious: Yes (Life-Threatening, Disabling, Other)
  Sender: FDA-Public Use
  Company Number: None

PATIENT
  Age: 78 Year
  Sex: Male
  Weight: 100.7 kg

DRUGS (1)
  1. LEVETIRACETAM [Suspect]
     Active Substance: LEVETIRACETAM
     Indication: Drug therapy
     Dosage: FREQUENCY : TWICE A DAY;?
     Route: 048
     Dates: start: 20230120, end: 20230122

REACTIONS (12)
  - Gait inability [None]
  - Grip strength decreased [None]
  - Movement disorder [None]
  - Fatigue [None]
  - Anger [None]
  - Somnolence [None]
  - Feeling abnormal [None]
  - Abnormal behaviour [None]
  - Hallucination, visual [None]
  - Delusion [None]
  - Drug monitoring procedure not performed [None]
  - Product complaint [None]

NARRATIVE: CASE EVENT DATE: 20230120
